FAERS Safety Report 25769218 (Version 2)
Quarter: 2025Q4

REPORT INFORMATION
  Report Type: Report from Study
  Country: CO (occurrence: None)
  Receive Date: 20250905
  Receipt Date: 20251107
  Transmission Date: 20260117
  Serious: Yes (Other)
  Sender: UCB
  Company Number: CO-UCBSA-2025054349

PATIENT
  Age: 7 Year

DRUGS (3)
  1. LACOSAMIDE [Suspect]
     Active Substance: LACOSAMIDE
     Indication: Epilepsy
     Dosage: 5 MILLILITER, 2X/DAY (BID)
  2. CLOBAZAM [Concomitant]
     Active Substance: CLOBAZAM
     Indication: Product used for unknown indication
     Dosage: 10 MILLIGRAM, 2X/DAY (BID)
  3. CANNABIDIOL [Concomitant]
     Active Substance: CANNABIDIOL
     Indication: Product used for unknown indication

REACTIONS (2)
  - Seizure [Recovered/Resolved]
  - Mood altered [Recovered/Resolved]
